FAERS Safety Report 11629752 (Version 1)
Quarter: 2015Q4

REPORT INFORMATION
  Report Type: Spontaneous
  Country: BR (occurrence: BR)
  Receive Date: 20151014
  Receipt Date: 20151014
  Transmission Date: 20160304
  Serious: Yes (Other)
  Sender: FDA-Public Use
  Company Number: PHHY2015BR123092

PATIENT
  Age: 31 Year
  Sex: Female

DRUGS (1)
  1. QUETIAPINE [Suspect]
     Active Substance: QUETIAPINE
     Indication: BIPOLAR DISORDER
     Dosage: 75 MG, QD
     Route: 048

REACTIONS (4)
  - Drug administration error [Unknown]
  - Hallucination [Unknown]
  - Hypoaesthesia oral [Unknown]
  - Dysentery [Unknown]
